FAERS Safety Report 24544249 (Version 2)
Quarter: 2024Q4

REPORT INFORMATION
  Report Type: Report from Study
  Country: IT (occurrence: IT)
  Receive Date: 20241024
  Receipt Date: 20241108
  Transmission Date: 20250115
  Serious: Yes (Death, Life-Threatening, Other)
  Sender: AUROBINDO
  Company Number: IT-MLMSERVICE-20241003-PI215611-00226-3

PATIENT
  Age: 3 Decade
  Sex: Male

DRUGS (2)
  1. MIRTAZAPINE [Interacting]
     Active Substance: MIRTAZAPINE
     Indication: Drug diversion
     Dosage: UNK
     Route: 065
     Dates: start: 2020, end: 2020
  2. METHADONE [Interacting]
     Active Substance: METHADONE HYDROCHLORIDE
     Indication: Drug diversion
     Dosage: UNK
     Route: 065
     Dates: start: 2020, end: 2020

REACTIONS (5)
  - Brain oedema [Fatal]
  - Pulmonary oedema [Fatal]
  - Toxicity to various agents [Fatal]
  - Drug interaction [Fatal]
  - Overdose [Fatal]

NARRATIVE: CASE EVENT DATE: 20200101
